FAERS Safety Report 9163882 (Version 2)
Quarter: 2013Q1

REPORT INFORMATION
  Report Type: Spontaneous
  Country: VE (occurrence: VE)
  Receive Date: 20130314
  Receipt Date: 20130321
  Transmission Date: 20140127
  Serious: Yes (Death, Other)
  Sender: FDA-Public Use
  Company Number: VE-PFIZER INC-2013087378

PATIENT
  Age: 87 Year
  Sex: Female

DRUGS (4)
  1. LIPITOR [Suspect]
     Indication: HYPERCHOLESTEROLAEMIA
     Dosage: 40 MG, 1X/DAY
     Route: 048
     Dates: start: 1998
  2. NORVASC [Concomitant]
     Dosage: 5 MG, 1X/DAY
     Route: 048
  3. BENICAR [Concomitant]
     Indication: HYPERTENSION
     Dosage: 20 MG, 1X/DAY
     Route: 048
  4. ZIAC [Concomitant]
     Indication: HYPERTENSION
     Dosage: 0.5 MG, 1X/DAY
     Route: 048

REACTIONS (2)
  - Respiratory arrest [Fatal]
  - Cerebrovascular accident [Not Recovered/Not Resolved]
